FAERS Safety Report 5670741-7 (Version None)
Quarter: 2008Q1

REPORT INFORMATION
  Report Type: 
  Country: None (occurrence: None)
  Receive Date: 20080318
  Receipt Date: 20080307
  Transmission Date: 20080703
  Serious: Yes (Life-Threatening, Other)
  Sender: FDA-Public Use
  Company Number: JP-JNJFOC-20080302495

PATIENT
  Sex: Female
  Weight: 48 kg

DRUGS (10)
  1. REMICADE [Suspect]
     Dosage: 10 DOSES;DATES NOT PROVIDED
     Route: 042
  2. REMICADE [Suspect]
     Dosage: 10 DOSES;DATES NOT PROVIDED
     Route: 042
  3. REMICADE [Suspect]
     Indication: RHEUMATOID ARTHRITIS
     Route: 042
  4. RHEUMATREX [Concomitant]
     Indication: RHEUMATOID ARTHRITIS
     Route: 048
  5. FOLIAMIN [Concomitant]
     Indication: RHEUMATOID ARTHRITIS
     Route: 048
  6. ZANTAC [Concomitant]
     Indication: GASTRITIS
     Route: 048
  7. VOLTAREN [Concomitant]
     Indication: RHEUMATOID ARTHRITIS
     Route: 048
  8. BONALON [Concomitant]
     Indication: OSTEOPOROSIS
     Route: 048
  9. OPALMON [Concomitant]
     Indication: SPINAL COLUMN STENOSIS
     Dosage: 15RG
     Route: 048
  10. MUCOSTA [Concomitant]
     Indication: GASTRITIS
     Route: 048

REACTIONS (7)
  - CARDIO-RESPIRATORY ARREST [None]
  - CORONARY ARTERY OCCLUSION [None]
  - CORONARY ARTERY STENOSIS [None]
  - ENCEPHALOPATHY [None]
  - LOSS OF CONSCIOUSNESS [None]
  - MYOCARDIAL INFARCTION [None]
  - VENTRICULAR TACHYCARDIA [None]
